FAERS Safety Report 7464588-9 (Version None)
Quarter: 2011Q1

REPORT INFORMATION
  Report Type: 
  Country: None (occurrence: None)
  Receive Date: 20110302
  Receipt Date: 20101019
  Transmission Date: 20110831
  Serious: Yes (Other)
  Sender: FDA-Public Use
  Company Number: 163-21880-10072058

PATIENT
  Age: 77 Year
  Sex: Female

DRUGS (4)
  1. REVLIMID [Suspect]
  2. REVLIMID [Suspect]
     Indication: MULTIPLE MYELOMA
     Dosage: 25 MG, DAILY FOR 21 DAYS EVERY 28 DAYS, PO
     Route: 048
     Dates: start: 20090901
  3. REVLIMID [Suspect]
  4. METOPROLOL (METOPROLOL) (50 MILLIGRAM, TABLETS) [Suspect]
     Indication: PRODUCT USED FOR UNKNOWN INDICATION
     Dosage: 1- 1/2 TAB, PO
     Route: 048

REACTIONS (8)
  - HYPOTENSION [None]
  - ANGINA PECTORIS [None]
  - PERIPHERAL COLDNESS [None]
  - OEDEMA PERIPHERAL [None]
  - DIZZINESS [None]
  - HYPERHIDROSIS [None]
  - NEUROPATHY PERIPHERAL [None]
  - DYSPNOEA [None]
